FAERS Safety Report 7880616-0 (Version None)
Quarter: 2011Q4

REPORT INFORMATION
  Report Type: 
  Country: None (occurrence: None)
  Receive Date: 20111101
  Receipt Date: 20111025
  Transmission Date: 20120403
  Serious: Yes (Death, Hospitalization, Other)
  Sender: FDA-Public Use
  Company Number: GB-ROCHE-1007592

PATIENT
  Sex: Female

DRUGS (8)
  1. ACETAMINOPHEN [Concomitant]
  2. VISCOTEARS [Concomitant]
  3. MORPHINE SULFATE [Concomitant]
  4. LUCENTIS [Suspect]
     Indication: MACULAR DEGENERATION
     Route: 050
     Dates: start: 20081015, end: 20091222
  5. EXEMESTANE [Concomitant]
  6. BISOPROLOL FUMARATE [Concomitant]
  7. ASPIRIN [Concomitant]
  8. BUMETANIDE [Concomitant]

REACTIONS (4)
  - METASTASES TO BONE [None]
  - BREAST CANCER FEMALE [None]
  - CARDIAC ARREST [None]
  - ATRIAL FIBRILLATION [None]
